FAERS Safety Report 24706102 (Version 1)
Quarter: 2024Q4

REPORT INFORMATION
  Report Type: Other
  Country: IN (occurrence: IT)
  Receive Date: 20241206
  Receipt Date: 20241206
  Transmission Date: 20250115
  Serious: Yes (Life-Threatening, Hospitalization, Other)
  Sender: BRECKENRIDGE PHARMACEUTICAL, INC.
  Company Number: IT-Breckenridge Pharmaceutical, Inc.-2166592

PATIENT
  Age: 86 Year
  Sex: Female

DRUGS (2)
  1. APIXABAN [Suspect]
     Active Substance: APIXABAN
     Indication: Superficial vein thrombosis
  2. DABIGATRAN [Suspect]
     Active Substance: DABIGATRAN

REACTIONS (2)
  - Overdose [Recovered/Resolved]
  - Coagulopathy [Recovered/Resolved]
